FAERS Safety Report 16287717 (Version 1)
Quarter: 2019Q2

REPORT INFORMATION
  Report Type: Spontaneous
  Country: JP (occurrence: JP)
  Receive Date: 20190508
  Receipt Date: 20190508
  Transmission Date: 20190711
  Serious: Yes (Other)
  Sender: FDA-Public Use
  Company Number: JP-ANIPHARMA-2019-JP-000088

PATIENT
  Age: 52 Year
  Sex: Female

DRUGS (8)
  1. CARBAMAZEPINE. [Suspect]
     Active Substance: CARBAMAZEPINE
     Indication: NEUROLOGICAL SYMPTOM
     Dosage: 200 MG DAILY
  2. REBAMIPIDE [Concomitant]
     Active Substance: REBAMIPIDE
  3. PROBUCOL [Concomitant]
     Active Substance: PROBUCOL
  4. SODIUM FERROUS CITRATE [Concomitant]
     Active Substance: SODIUM FERROUS CITRATE
  5. DOMPERIDONE [Concomitant]
     Active Substance: DOMPERIDONE
  6. EVEROLIMUS. [Suspect]
     Active Substance: EVEROLIMUS
     Indication: METASTATIC RENAL CELL CARCINOMA
     Dosage: 10 MG DAILY
     Route: 048
  7. LANSOPRAZOLE (NON-SPECIFIC) [Suspect]
     Active Substance: LANSOPRAZOLE
     Indication: PRODUCT USED FOR UNKNOWN INDICATION
     Dosage: 30 MG DAILY
  8. PREDNISOLONE. [Suspect]
     Active Substance: PREDNISOLONE
     Indication: BRAIN OEDEMA
     Dosage: 10 MG DAILY

REACTIONS (1)
  - Drug interaction [Unknown]
